FAERS Safety Report 6149743-2 (Version None)
Quarter: 2009Q2

REPORT INFORMATION
  Report Type: 
  Country: None (occurrence: None)
  Receive Date: 20090407
  Receipt Date: 20090407
  Transmission Date: 20091009
  Serious: Yes (Hospitalization)
  Sender: FDA-Public Use
  Company Number: None

PATIENT
  Age: 84 Year
  Sex: Female
  Weight: 74 kg

DRUGS (2)
  1. DILAUDID [Suspect]
     Indication: ARTHRALGIA
     Dosage: 4 MG Q4H-PRN IV 1 DOSE
     Route: 042
  2. DILAUDID [Suspect]
     Indication: ARTHRALGIA
     Dosage: PCA PCA IV
     Route: 042

REACTIONS (6)
  - BLOOD PRESSURE DECREASED [None]
  - DYSARTHRIA [None]
  - LETHARGY [None]
  - OXYGEN SATURATION DECREASED [None]
  - RESPIRATORY RATE INCREASED [None]
  - UNRESPONSIVE TO STIMULI [None]
